FAERS Safety Report 23237038 (Version 1)
Quarter: 2023Q4

REPORT INFORMATION
  Report Type: Spontaneous
  Country: US (occurrence: US)
  Receive Date: 20231128
  Receipt Date: 20231128
  Transmission Date: 20240110
  Serious: Yes (Hospitalization, Other)
  Sender: FDA-Public Use
  Company Number: US-GLAXOSMITHKLINE-US2023GSK160257

PATIENT

DRUGS (3)
  1. LAMOTRIGINE [Suspect]
     Active Substance: LAMOTRIGINE
     Indication: Seizure
     Dosage: 300 MG
  2. LAMOTRIGINE [Suspect]
     Active Substance: LAMOTRIGINE
     Dosage: 400 MG
  3. PEMBROLIZUMAB [Suspect]
     Active Substance: PEMBROLIZUMAB
     Indication: Seizure
     Dosage: UNK
     Route: 042
     Dates: start: 20210811, end: 20220315

REACTIONS (19)
  - Stevens-Johnson syndrome [Recovering/Resolving]
  - Toxic epidermal necrolysis [Recovering/Resolving]
  - Rash [Recovering/Resolving]
  - Hyperpyrexia [Unknown]
  - Swelling face [Unknown]
  - Pyrexia [Unknown]
  - Chills [Unknown]
  - Foreign body sensation in eyes [Unknown]
  - Macule [Recovering/Resolving]
  - Papule [Recovering/Resolving]
  - Skin plaque [Recovering/Resolving]
  - Lip ulceration [Unknown]
  - Oral mucosal erythema [Recovering/Resolving]
  - Blister [Recovering/Resolving]
  - Skin erosion [Recovering/Resolving]
  - Nikolsky^s sign [Recovering/Resolving]
  - Epidermal necrosis [Recovering/Resolving]
  - Skin lesion [Recovering/Resolving]
  - Staphylococcal sepsis [Unknown]
